FAERS Safety Report 7274908-6 (Version None)
Quarter: 2011Q1

REPORT INFORMATION
  Report Type: 
  Country: None (occurrence: None)
  Receive Date: 20110204
  Receipt Date: 20110125
  Transmission Date: 20110831
  Serious: Yes (Hospitalization)
  Sender: FDA-Public Use
  Company Number: DE-JNJFOC-20101105337

PATIENT
  Sex: Male
  Weight: 85 kg

DRUGS (2)
  1. PALEXIA RETARD [Suspect]
     Indication: PAIN
     Route: 065
     Dates: start: 20101029, end: 20101030
  2. ADALAT [Concomitant]
     Indication: HYPERTENSION

REACTIONS (4)
  - NASAL OEDEMA [None]
  - ABDOMINAL PAIN UPPER [None]
  - DYSPNOEA [None]
  - NAUSEA [None]
